FAERS Safety Report 12170453 (Version 1)
Quarter: 2016Q1

REPORT INFORMATION
  Report Type: Spontaneous
  Country: US (occurrence: US)
  Receive Date: 20160311
  Receipt Date: 20160311
  Transmission Date: 20160526
  Serious: Yes (Hospitalization)
  Sender: FDA-Public Use
  Company Number: US-ASTRAZENECA-2016SE07628

PATIENT
  Sex: Female
  Weight: 74.8 kg

DRUGS (8)
  1. TOPROL XL [Suspect]
     Active Substance: METOPROLOL SUCCINATE
     Indication: PALPITATIONS
     Dosage: 25 MG, TWO TIMES A DAY (MANUFACTURER: PAR)
     Route: 065
     Dates: start: 20151231
  2. METHIMAZOLE. [Concomitant]
     Active Substance: METHIMAZOLE
     Indication: THYROID DISORDER
     Route: 048
  3. TOPROL XL [Suspect]
     Active Substance: METOPROLOL SUCCINATE
     Indication: PALPITATIONS
     Dosage: OTHER MANUFACTURER
     Route: 065
  4. TOPROL XL [Suspect]
     Active Substance: METOPROLOL SUCCINATE
     Indication: VENTRICULAR EXTRASYSTOLES
     Dosage: 25 MG, TWO TIMES A DAY (MANUFACTURER: PAR)
     Route: 065
     Dates: start: 20151231
  5. TOPROL XL [Suspect]
     Active Substance: METOPROLOL SUCCINATE
     Indication: VENTRICULAR EXTRASYSTOLES
     Dosage: OTHER MANUFACTURER
     Route: 065
  6. TOPROL XL [Suspect]
     Active Substance: METOPROLOL SUCCINATE
     Indication: VENTRICULAR EXTRASYSTOLES
     Dosage: 50 MG, UNKNOWN (MANUFACTURER: ASTRAZENECA)
     Route: 048
  7. OMEPRAZOLE. [Concomitant]
     Active Substance: OMEPRAZOLE
     Indication: ABDOMINAL DISCOMFORT
     Route: 048
  8. TOPROL XL [Suspect]
     Active Substance: METOPROLOL SUCCINATE
     Indication: PALPITATIONS
     Dosage: 50 MG, UNKNOWN (MANUFACTURER: ASTRAZENECA)
     Route: 048

REACTIONS (6)
  - Drug ineffective [Unknown]
  - Intentional product misuse [Unknown]
  - Palpitations [Unknown]
  - Ventricular extrasystoles [Unknown]
  - Panic attack [Unknown]
  - Anxiety [Unknown]
